FAERS Safety Report 5241835-5 (Version None)
Quarter: 2007Q1

REPORT INFORMATION
  Report Type: 
  Country: None (occurrence: None)
  Receive Date: 20070220
  Receipt Date: 20070213
  Transmission Date: 20070707
  Serious: Yes (Death)
  Sender: FDA-Public Use
  Company Number: CN-JNJFOC-20070203523

PATIENT
  Age: 3 Month

DRUGS (4)
  1. TYLENOL (CAPLET) [Suspect]
  2. TYLENOL (CAPLET) [Suspect]
     Indication: PYREXIA
     Dosage: UNKNOWN
  3. CEFACLOR [Concomitant]
     Indication: INFECTION
  4. TRADITIONAL CHINESE MEDICINE [Concomitant]
     Indication: COUGH

REACTIONS (1)
  - DEATH [None]
